FAERS Safety Report 9991498 (Version 1)
Quarter: 2014Q1

REPORT INFORMATION
  Report Type: Report from Study
  Country: US (occurrence: US)
  Receive Date: 20140310
  Receipt Date: 20140310
  Transmission Date: 20141002
  Serious: No
  Sender: FDA-Public Use
  Company Number: US-ABBVIE-13P-163-1129795-00

PATIENT
  Age: 50 Year
  Sex: Female

DRUGS (1)
  1. HUMIRA [Suspect]
     Indication: SJOGREN^S SYNDROME
     Dates: start: 201212

REACTIONS (5)
  - Haemorrhoids [Not Recovered/Not Resolved]
  - Off label use [Not Recovered/Not Resolved]
  - Anal pruritus [Not Recovered/Not Resolved]
  - Vulvovaginal pruritus [Not Recovered/Not Resolved]
  - Vulvovaginal mycotic infection [Recovered/Resolved]
